FAERS Safety Report 13912198 (Version 1)
Quarter: 2017Q3

REPORT INFORMATION
  Report Type: Spontaneous
  Country: US (occurrence: US)
  Receive Date: 20170828
  Receipt Date: 20170828
  Transmission Date: 20171127
  Serious: No
  Sender: FDA-Public Use
  Company Number: US-ROCHE-GNE094310

PATIENT
  Age: 49 Year
  Sex: Female
  Weight: 81.72 kg

DRUGS (4)
  1. ESTROGEN PATCH [Concomitant]
     Active Substance: ESTRADIOL
  2. NUTROPIN AQ [Suspect]
     Active Substance: SOMATROPIN
     Indication: DWARFISM
     Dosage: DOSE=21 UNIT
     Route: 058
     Dates: start: 199906
  3. DITROPAN [Concomitant]
     Active Substance: OXYBUTYNIN CHLORIDE
  4. ORNADE SPANSULE [Concomitant]

REACTIONS (1)
  - Tremor [Recovered/Resolved]

NARRATIVE: CASE EVENT DATE: 20000108
